FAERS Safety Report 6345608-1 (Version None)
Quarter: 2009Q3

REPORT INFORMATION
  Report Type: 
  Country: None (occurrence: None)
  Receive Date: 20090909
  Receipt Date: 20090831
  Transmission Date: 20100115
  Serious: Yes (Other)
  Sender: FDA-Public Use
  Company Number: US-PFIZER INC-2009263036

PATIENT
  Sex: Female

DRUGS (2)
  1. NORVASC [Suspect]
  2. VERAPAMIL [Concomitant]

REACTIONS (2)
  - EROSIVE OESOPHAGITIS [None]
  - PAIN IN EXTREMITY [None]
